FAERS Safety Report 16352410 (Version 2)
Quarter: 2019Q3

REPORT INFORMATION
  Report Type: Report from Study
  Country: DE (occurrence: DE)
  Receive Date: 20190524
  Receipt Date: 20190712
  Transmission Date: 20191004
  Serious: No
  Sender: FDA-Public Use
  Company Number: DE-ROCHE-2324933

PATIENT
  Age: 36 Year
  Sex: Female

DRUGS (4)
  1. OCREVUS [Suspect]
     Active Substance: OCRELIZUMAB
     Indication: RELAPSING-REMITTING MULTIPLE SCLEROSIS
     Route: 042
     Dates: start: 20190418
  2. OCREVUS [Suspect]
     Active Substance: OCRELIZUMAB
     Route: 042
     Dates: start: 20190502
  3. VITAMINE D [Concomitant]
     Active Substance: CHOLECALCIFEROL
  4. DOSTINEX [Concomitant]
     Active Substance: CABERGOLINE
     Route: 065

REACTIONS (6)
  - Headache [Recovered/Resolved]
  - Fatigue [Recovered/Resolved]
  - Hyperhidrosis [Recovered/Resolved]
  - Gastrointestinal pain [Recovered/Resolved]
  - Infection [Not Recovered/Not Resolved]
  - Abdominal rigidity [Not Recovered/Not Resolved]

NARRATIVE: CASE EVENT DATE: 20190418
